FAERS Safety Report 7415536-9 (Version None)
Quarter: 2011Q2

REPORT INFORMATION
  Report Type: 
  Country: None (occurrence: None)
  Receive Date: 20110414
  Receipt Date: 20110210
  Transmission Date: 20111010
  Serious: Yes (Other)
  Sender: FDA-Public Use
  Company Number: NL-BAYER-2011-012633

PATIENT
  Sex: Female

DRUGS (1)
  1. NEXAVAR [Suspect]
     Indication: HEPATIC NEOPLASM MALIGNANT
     Dosage: 400 MG, BID
     Route: 048

REACTIONS (6)
  - WEIGHT INCREASED [None]
  - HEPATIC NEOPLASM MALIGNANT [None]
  - THYROIDITIS [None]
  - FATIGUE [None]
  - HYPERTHYROIDISM [None]
  - HYPOTHYROIDISM [None]
